FAERS Safety Report 7134227-5 (Version None)
Quarter: 2010Q4

REPORT INFORMATION
  Report Type: 
  Country: None (occurrence: None)
  Receive Date: 20101203
  Receipt Date: 20101129
  Transmission Date: 20110411
  Serious: Yes (Death, Hospitalization)
  Sender: FDA-Public Use
  Company Number: FR-ASTRAZENECA-2010SE56197

PATIENT
  Age: 25320 Day
  Sex: Female

DRUGS (12)
  1. DIPRIVAN [Suspect]
     Route: 042
     Dates: start: 20101029, end: 20101029
  2. AVASTIN [Suspect]
     Route: 042
     Dates: end: 20100914
  3. TAXOTERE [Suspect]
     Dosage: 6 COURSE.
     Route: 042
     Dates: end: 20101015
  4. SKENAN [Suspect]
     Route: 048
     Dates: start: 20101030, end: 20101031
  5. NIMBEX [Suspect]
     Route: 042
     Dates: start: 20101029, end: 20101029
  6. CALCIPARINE [Suspect]
     Dosage: 5000IU/0.2 ML.
     Route: 058
     Dates: start: 20101029, end: 20101101
  7. PARACETAMOL PANPHARMA [Suspect]
     Route: 042
     Dates: start: 20101030, end: 20101031
  8. RAPIFEN [Suspect]
     Route: 042
     Dates: start: 20101030, end: 20101031
  9. CEFUROXIME PANPHARMA [Suspect]
     Route: 065
     Dates: start: 20101029, end: 20101029
  10. LOXEN [Concomitant]
     Dosage: LONG LASTING.
  11. LEVOTHYROXINE SODIUM [Concomitant]
     Dosage: LONG LASTING.
  12. NOCTRAN [Concomitant]
     Dosage: LONG LASTING.

REACTIONS (1)
  - ARTERIAL THROMBOSIS [None]
